FAERS Safety Report 7264713-9 (Version None)
Quarter: 2011Q1

REPORT INFORMATION
  Report Type: 
  Country: None (occurrence: None)
  Receive Date: 20110131
  Receipt Date: 20110124
  Transmission Date: 20110831
  Serious: Yes (Other)
  Sender: FDA-Public Use
  Company Number: GB-JNJFOC-20110106923

PATIENT
  Age: 77 Year
  Sex: Female

DRUGS (4)
  1. ADCAL D3 [Concomitant]
     Indication: OSTEOPOROSIS
     Route: 048
  2. LEVOTHYROXINE SODIUM [Concomitant]
     Indication: HYPOTHYROIDISM
     Route: 048
  3. ITRACONAZOLE [Suspect]
     Indication: PRODUCT USED FOR UNKNOWN INDICATION
     Route: 048
  4. ALENDRONIC ACID [Concomitant]
     Indication: OSTEOPOROSIS
     Route: 048

REACTIONS (2)
  - VASCULITIS [None]
  - PURPURA [None]
